FAERS Safety Report 9748306 (Version 1)
Quarter: 2013Q4

REPORT INFORMATION
  Report Type: Spontaneous
  Country: SE (occurrence: None)
  Receive Date: 20131206
  Receipt Date: 20131206
  Transmission Date: 20140711
  Serious: Yes (Other)
  Sender: FDA-Public Use
  Company Number: SYM-2013-13471

PATIENT
  Sex: Female

DRUGS (1)
  1. VOXRA [Suspect]
     Indication: PRODUCT USED FOR UNKNOWN INDICATION

REACTIONS (36)
  - Suicidal ideation [None]
  - Dyspnoea [None]
  - Blunted affect [None]
  - Personality disorder [None]
  - Fatigue [None]
  - Alopecia [None]
  - Madarosis [None]
  - Madarosis [None]
  - Madarosis [None]
  - Trichorrhexis [None]
  - Hair texture abnormal [None]
  - Dry mouth [None]
  - Oropharyngeal pain [None]
  - Speech disorder [None]
  - Dry skin [None]
  - Skin wrinkling [None]
  - Skin atrophy [None]
  - Skin disorder [None]
  - Skin discolouration [None]
  - Tension [None]
  - Muscle tightness [None]
  - Movement disorder [None]
  - Tension headache [None]
  - Bruxism [None]
  - Sexual dysfunction [None]
  - Visual impairment [None]
  - Vision blurred [None]
  - Eye pain [None]
  - Sleep disorder [None]
  - Sleep disorder [None]
  - Dysgeusia [None]
  - Hallucination [None]
  - Asthenia [None]
  - Emotional distress [None]
  - Hair growth abnormal [None]
  - Mucosal dryness [None]
